FAERS Safety Report 5719303-3 (Version None)
Quarter: 2008Q2

REPORT INFORMATION
  Report Type: 
  Country: None (occurrence: None)
  Receive Date: 20080428
  Receipt Date: 20080326
  Transmission Date: 20081010
  Serious: No
  Sender: FDA-Public Use
  Company Number: US-BAYER-200818361NA

PATIENT
  Age: 6 Year
  Sex: Female

DRUGS (1)
  1. CIPRO [Suspect]
     Indication: CHRONIC SINUSITIS
     Dosage: TOTAL DAILY DOSE: 1500 MG  UNIT DOSE: 750 MG
     Route: 048

REACTIONS (1)
  - GASTROINTESTINAL DISORDER [None]
